FAERS Safety Report 6137261-7 (Version None)
Quarter: 2009Q1

REPORT INFORMATION
  Report Type: 
  Country: None (occurrence: None)
  Receive Date: 20090326
  Receipt Date: 20090326
  Transmission Date: 20090719
  Serious: Yes (Hospitalization)
  Sender: FDA-Public Use
  Company Number: None

PATIENT
  Age: 60 Year
  Sex: Female
  Weight: 163.3 kg

DRUGS (1)
  1. FERRLECIT [Suspect]
     Indication: IRON DEFICIENCY ANAEMIA
     Dosage: 500MG ONCE IV DRIP
     Route: 041
     Dates: start: 20090302, end: 20090302

REACTIONS (4)
  - BACK PAIN [None]
  - DIARRHOEA [None]
  - HYPOTENSION [None]
  - INFUSION RELATED REACTION [None]
